FAERS Safety Report 4536214-X (Version None)
Quarter: 2004Q4

REPORT INFORMATION
  Report Type: 
  Country: None (occurrence: None)
  Receive Date: 20041223
  Receipt Date: 20041215
  Transmission Date: 20050328
  Serious: Yes (Disabling)
  Sender: FDA-Public Use
  Company Number: GB-GLAXOSMITHKLINE-B0361902A

PATIENT
  Sex: Female

DRUGS (10)
  1. PAROXETINE HCL [Suspect]
     Route: 048
     Dates: start: 20010206
  2. AMITRIPTYLINE [Suspect]
     Route: 048
     Dates: start: 20040611
  3. CITALOPRAM [Suspect]
     Route: 048
     Dates: start: 20001208
  4. FLUOXETINE [Suspect]
     Route: 048
     Dates: start: 20000126
  5. VENLAFAXINE HCL [Suspect]
     Route: 048
     Dates: start: 20040401
  6. DOTHIEPIN HYDROCHLORIDE [Suspect]
     Route: 048
     Dates: start: 20011012
  7. LOFEPRAMINE [Suspect]
     Route: 065
     Dates: start: 20040301
  8. MIRTAZAPINE [Suspect]
     Route: 065
     Dates: start: 20010730
  9. LOSARTAN [Concomitant]
     Route: 065
     Dates: start: 20040301
  10. OMEPRAZOLE [Concomitant]
     Dosage: 20MG PER DAY
     Route: 048
     Dates: start: 20030701

REACTIONS (3)
  - EYE PRURITUS [None]
  - EYELID OEDEMA [None]
  - INFLAMMATION [None]
